FAERS Safety Report 23030508 (Version 1)
Quarter: 2023Q4

REPORT INFORMATION
  Report Type: Spontaneous
  Country: GB (occurrence: GB)
  Receive Date: 20231005
  Receipt Date: 20231005
  Transmission Date: 20240110
  Serious: Yes (Death, Other)
  Sender: FDA-Public Use
  Company Number: GB-ABBVIE-5417482

PATIENT
  Age: 78 Year
  Sex: Female

DRUGS (4)
  1. HYDROXYUREA [Suspect]
     Active Substance: HYDROXYUREA
     Indication: Product used for unknown indication
     Dosage: 8G GIVEN FOR 2 WEEKS
  2. AZACITIDINE [Suspect]
     Active Substance: AZACITIDINE
     Indication: Acute myeloid leukaemia
  3. RASBURICASE [Suspect]
     Active Substance: RASBURICASE
     Indication: Acute myeloid leukaemia
  4. VENETOCLAX [Suspect]
     Active Substance: VENETOCLAX
     Indication: Acute myeloid leukaemia
     Dosage: DAILY DOSE: 1000 MILLIGRAM
     Dates: start: 20220414, end: 20220414

REACTIONS (4)
  - Tumour lysis syndrome [Fatal]
  - Drug resistance [Unknown]
  - White blood cell count decreased [Unknown]
  - Dehydration [Unknown]

NARRATIVE: CASE EVENT DATE: 20220412
